FAERS Safety Report 5472410-5 (Version None)
Quarter: 2007Q3

REPORT INFORMATION
  Report Type: 
  Country: None (occurrence: None)
  Receive Date: 20070926
  Receipt Date: 20070914
  Transmission Date: 20080115
  Serious: Yes (Other)
  Sender: FDA-Public Use
  Company Number: CHNY2007AU03176

PATIENT
  Age: 59 Year
  Sex: Female

DRUGS (6)
  1. NICOTINE [Suspect]
     Indication: SMOKING CESSATION THERAPY
     Dosage: 21 MG, 3 PATCHES, TRANSDERMAL; 21 MG, TRANSDERMAL
     Route: 062
  2. NICOTINE GUM (NCH)(NICOTINE) [Concomitant]
  3. NICABATE (NICOTINE) [Concomitant]
  4. SERETIDE (FLUTICASONE PROPIONATE, SALMETEROL XINAFOATE) [Concomitant]
  5. ASPIRIN [Concomitant]
  6. NEXIUM [Concomitant]

REACTIONS (8)
  - ASTHENIA [None]
  - DIZZINESS [None]
  - GAIT DISTURBANCE [None]
  - HEADACHE [None]
  - NAUSEA [None]
  - NIGHTMARE [None]
  - OVERDOSE [None]
  - TREATMENT NONCOMPLIANCE [None]
